FAERS Safety Report 7525251-9 (Version None)
Quarter: 2011Q2

REPORT INFORMATION
  Report Type: 
  Country: None (occurrence: None)
  Receive Date: 20110606
  Receipt Date: 20110216
  Transmission Date: 20111010
  Serious: Yes (Life-Threatening, Other)
  Sender: FDA-Public Use
  Company Number: JP-BAYER-2011-015733

PATIENT
  Age: 63 Year
  Sex: Male
  Weight: 55 kg

DRUGS (13)
  1. ALINAMIN F [Concomitant]
     Indication: HYPOPHAGIA
     Dosage: DAILY DOSE 75 MG
     Route: 048
  2. NEXAVAR [Suspect]
     Dosage: DAILY DOSE 600 MG
     Route: 048
     Dates: start: 20101202, end: 20101227
  3. NEXAVAR [Suspect]
     Dosage: 400 MG, QD
     Route: 048
     Dates: end: 20110424
  4. VE NICOTINATE TAKESHIMA [Concomitant]
     Indication: HYPERTENSION
     Dosage: DAILY DOSE 600 MG
     Route: 048
  5. BI LOVE [Concomitant]
     Indication: HYPOPHAGIA
     Dosage: DAILY DOSE 40 MG
     Route: 048
  6. NEXAVAR [Suspect]
     Dosage: DAILY DOSE 600 MG
     Route: 048
     Dates: start: 20110111
  7. URSO 250 [Concomitant]
     Indication: HEPATIC FUNCTION ABNORMAL
     Dosage: DAILY DOSE 300 MG
     Route: 048
  8. RIBOVIX [Concomitant]
     Indication: HYPOPHAGIA
     Dosage: DAILY DOSE 20 MG
     Route: 048
  9. NEXAVAR [Suspect]
     Dosage: DAILY DOSE 600 MG
     Route: 048
     Dates: start: 20110111
  10. FAMOTIDINE [Concomitant]
     Indication: GASTRIC ULCER
     Dosage: DAILY DOSE 40 MG
     Route: 048
  11. AMLODIPINE [Concomitant]
     Indication: HYPERTENSION
     Dosage: DAILY DOSE 5 MG
     Route: 048
  12. NEXAVAR [Suspect]
     Indication: HEPATIC NEOPLASM MALIGNANT
     Dosage: DAILY DOSE 400 MG
     Route: 048
     Dates: start: 20101125, end: 20101201
  13. CEREKINON [Concomitant]
     Indication: GASTRITIS
     Dosage: DAILY DOSE 300 MG
     Route: 048

REACTIONS (11)
  - ABDOMINAL DISCOMFORT [None]
  - WHITE BLOOD CELL COUNT INCREASED [None]
  - PANCREATITIS [None]
  - SOMNOLENCE [None]
  - BACK PAIN [None]
  - MALAISE [None]
  - PROTHROMBIN TIME PROLONGED [None]
  - ANAEMIA [None]
  - HEPATIC ENCEPHALOPATHY [None]
  - PALMAR-PLANTAR ERYTHRODYSAESTHESIA SYNDROME [None]
  - HEPATIC FAILURE [None]
